FAERS Safety Report 13260756 (Version 3)
Quarter: 2018Q2

REPORT INFORMATION
  Report Type: Report from Study
  Country: US (occurrence: US)
  Receive Date: 20170222
  Receipt Date: 20180424
  Transmission Date: 20180711
  Serious: Yes (Other)
  Sender: FDA-Public Use
  Company Number: US-JAZZ-2016-US-023607

PATIENT
  Sex: Female

DRUGS (19)
  1. CONCERTA [Concomitant]
     Active Substance: METHYLPHENIDATE HYDROCHLORIDE
  2. EFFEXOR [Concomitant]
     Active Substance: VENLAFAXINE HYDROCHLORIDE
  3. LEVSIN [Concomitant]
     Active Substance: HYOSCYAMINE SULFATE
  4. RELPAX [Concomitant]
     Active Substance: ELETRIPTAN HYDROBROMIDE
  5. ALTACE [Concomitant]
     Active Substance: RAMIPRIL
  6. XYREM [Suspect]
     Active Substance: SODIUM OXYBATE
     Dosage: 3 G, QD SECOND DOSE
     Dates: start: 201606
  7. GABAPENTIN. [Concomitant]
     Active Substance: GABAPENTIN
  8. FLAXSEED [Concomitant]
     Active Substance: FLAX SEED
  9. MAGNESIUM [Concomitant]
     Active Substance: MAGNESIUM
  10. MIRENA [Concomitant]
     Active Substance: LEVONORGESTREL
  11. SINGULAIR [Concomitant]
     Active Substance: MONTELUKAST SODIUM
  12. ASCORBIC ACID. [Concomitant]
     Active Substance: ASCORBIC ACID
  13. COREG [Concomitant]
     Active Substance: CARVEDILOL
  14. XYREM [Suspect]
     Active Substance: SODIUM OXYBATE
     Dosage: 3.75 G, QD FIRST DOSE
     Dates: start: 201606
  15. LYSINE [Concomitant]
     Active Substance: LYSINE
  16. SALBUTAMOL [Concomitant]
     Active Substance: ALBUTEROL
  17. OMEPRAZOLE. [Concomitant]
     Active Substance: OMEPRAZOLE
  18. XYREM [Suspect]
     Active Substance: SODIUM OXYBATE
     Indication: NARCOLEPSY
     Dosage: 2.25 G, BID
     Route: 048
     Dates: start: 201204, end: 201205
  19. XYREM [Suspect]
     Active Substance: SODIUM OXYBATE
     Indication: CATAPLEXY
     Dosage: DOSE ADJUSTMENT
     Route: 048
     Dates: start: 201205, end: 201606

REACTIONS (2)
  - Gestational diabetes [Recovering/Resolving]
  - Exposure during pregnancy [Unknown]
